FAERS Safety Report 9375047 (Version 1)
Quarter: 2013Q2

REPORT INFORMATION
  Report Type: Spontaneous
  Country: GB (occurrence: GB)
  Receive Date: 20130628
  Receipt Date: 20130628
  Transmission Date: 20140414
  Serious: Yes (Other)
  Sender: FDA-Public Use
  Company Number: GB-BAUSCH-BL-2013-003839

PATIENT
  Sex: Female

DRUGS (2)
  1. DEXAMETHASONE [Suspect]
     Indication: POLYMYALGIA RHEUMATICA
     Route: 048
     Dates: start: 20130602
  2. PREDNISOLONE [Suspect]
     Indication: POLYMYALGIA RHEUMATICA
     Route: 048

REACTIONS (4)
  - Gait disturbance [Unknown]
  - Headache [Unknown]
  - Dizziness [Unknown]
  - Nausea [Unknown]
